FAERS Safety Report 10982312 (Version 18)
Quarter: 2016Q4

REPORT INFORMATION
  Report Type: Report from Study
  Country: CA (occurrence: CA)
  Receive Date: 20150403
  Receipt Date: 20161025
  Transmission Date: 20170206
  Serious: Yes (Other)
  Sender: FDA-Public Use
  Company Number: CA-ROCHE-1467262

PATIENT
  Age: 75 Year
  Sex: Female
  Weight: 67 kg

DRUGS (7)
  1. TYLENOL [Concomitant]
     Active Substance: ACETAMINOPHEN
  2. PAROXETINE. [Concomitant]
     Active Substance: PAROXETINE
     Indication: DEPRESSION
  3. TRAZODONE [Concomitant]
     Active Substance: TRAZODONE HYDROCHLORIDE
     Indication: DEPRESSION
  4. IRBESARTAN. [Concomitant]
     Active Substance: IRBESARTAN
     Indication: BLOOD PRESSURE MEASUREMENT
  5. ACTEMRA [Suspect]
     Active Substance: TOCILIZUMAB
     Indication: RHEUMATOID ARTHRITIS
     Route: 042
     Dates: start: 20140730, end: 20161006
  6. RABEPRAZOLE [Concomitant]
     Active Substance: RABEPRAZOLE
  7. ATORVASTATIN [Concomitant]
     Active Substance: ATORVASTATIN

REACTIONS (20)
  - Blood pressure increased [Unknown]
  - Herpes zoster [Not Recovered/Not Resolved]
  - Viral infection [Recovering/Resolving]
  - Blood pressure systolic increased [Unknown]
  - Pulmonary mass [Not Recovered/Not Resolved]
  - Infection [Unknown]
  - Urinary tract infection [Not Recovered/Not Resolved]
  - Tooth abscess [Unknown]
  - Chest discomfort [Recovering/Resolving]
  - Dyspnoea [Recovering/Resolving]
  - Syncope [Unknown]
  - Bartholin^s abscess [Unknown]
  - Tooth disorder [Not Recovered/Not Resolved]
  - Infusion related reaction [Unknown]
  - Diarrhoea [Unknown]
  - Diverticulitis [Not Recovered/Not Resolved]
  - Acne [Unknown]
  - Rheumatoid arthritis [Unknown]
  - Fall [Unknown]
  - Blood pressure fluctuation [Unknown]

NARRATIVE: CASE EVENT DATE: 20141202
